FAERS Safety Report 9540815 (Version 1)
Quarter: 2013Q3

REPORT INFORMATION
  Report Type: Spontaneous
  Country: US (occurrence: US)
  Receive Date: 20130920
  Receipt Date: 20130920
  Transmission Date: 20140515
  Serious: Yes (Other)
  Sender: FDA-Public Use
  Company Number: PHEH2013US019712

PATIENT
  Age: 9 Year
  Sex: Male
  Weight: 43.25 kg

DRUGS (3)
  1. FOCALIN XR [Suspect]
     Indication: ATTENTION DEFICIT/HYPERACTIVITY DISORDER
     Dosage: 25 MG, UNK
     Route: 048
     Dates: start: 20121030, end: 20130822
  2. MELATONIN [Concomitant]
     Indication: SLEEP DISORDER
     Dosage: 3 MG, UNK (AT BED TIME)
     Route: 048
  3. ATARAX                                  /POR/ [Concomitant]
     Indication: SLEEP DISORDER
     Dosage: UNK UKN, UNK (10-20 M) (AT BED TIME)
     Route: 048

REACTIONS (5)
  - Hallucination [Recovered/Resolved]
  - Abdominal distension [Unknown]
  - Abdominal discomfort [Unknown]
  - Vomiting [Unknown]
  - Inappropriate schedule of drug administration [Unknown]
